FAERS Safety Report 10156368 (Version 3)
Quarter: 2014Q2

REPORT INFORMATION
  Report Type: Report from Study
  Country: US (occurrence: US)
  Receive Date: 20140507
  Receipt Date: 20140515
  Transmission Date: 20141212
  Serious: Yes (Hospitalization, Other)
  Sender: FDA-Public Use
  Company Number: US-BRISTOL-MYERS SQUIBB COMPANY-20654372

PATIENT
  Age: 78 Year
  Sex: Male
  Weight: 95.9 kg

DRUGS (10)
  1. BLINDED: DAPAGLIFLOZIN 10 MG [Suspect]
     Indication: TYPE 2 DIABETES MELLITUS
     Route: 048
     Dates: start: 20130315
  2. BLINDED: SAXAGLIPTIN [Suspect]
     Indication: TYPE 2 DIABETES MELLITUS
     Route: 048
     Dates: start: 20130708
  3. METFORMIN HCL [Suspect]
     Indication: TYPE 2 DIABETES MELLITUS
     Route: 048
     Dates: start: 20130315, end: 20140416
  4. BLINDED: PLACEBO [Suspect]
     Indication: TYPE 2 DIABETES MELLITUS
  5. COSOPT [Concomitant]
     Dates: start: 2010
  6. LISINOPRIL [Concomitant]
     Dates: start: 2008
  7. BACTRIM [Concomitant]
     Dates: start: 20130821
  8. LANTUS [Concomitant]
     Dates: start: 20140413, end: 20140421
  9. CIPROFLOXACIN [Concomitant]
  10. AVODART [Concomitant]

REACTIONS (2)
  - Syncope [Recovered/Resolved]
  - Rhabdomyolysis [Unknown]
